FAERS Safety Report 7048898-5 (Version None)
Quarter: 2010Q4

REPORT INFORMATION
  Report Type: 
  Country: None (occurrence: None)
  Receive Date: 20101008
  Receipt Date: 20100929
  Transmission Date: 20110411
  Serious: Yes (Death, Life-Threatening, Hospitalization, Other)
  Sender: FDA-Public Use
  Company Number: 2009AC000536

PATIENT
  Age: 80 Year
  Sex: Female

DRUGS (14)
  1. DIGOXIN [Suspect]
     Indication: PRODUCT USED FOR UNKNOWN INDICATION
     Dosage: PO
     Route: 048
  2. DIGOXIN [Suspect]
     Indication: PRODUCT USED FOR UNKNOWN INDICATION
     Dosage: 0.125 MG;M,W,F;PO
     Route: 048
     Dates: start: 20060428, end: 20070501
  3. PLAVIX [Concomitant]
  4. RENAGEL [Concomitant]
  5. ARICEPT [Concomitant]
  6. ASPIRIN [Concomitant]
  7. LEVOTHYROXINE [Concomitant]
  8. PREDNISONE [Concomitant]
  9. NORVASC [Concomitant]
  10. ALBUTEROL INHALER [Concomitant]
  11. POIETIN ALPHA [Concomitant]
  12. PARICALCITOL [Concomitant]
  13. VANCOMYCIN [Concomitant]
  14. GLAUCOMA EYE DROPS [Concomitant]

REACTIONS (11)
  - ANXIETY [None]
  - BLOOD CULTURE POSITIVE [None]
  - ECONOMIC PROBLEM [None]
  - HYPERTENSIVE HEART DISEASE [None]
  - MULTIPLE INJURIES [None]
  - PAIN [None]
  - PNEUMONIA [None]
  - RESPIRATORY ARREST [None]
  - STAPHYLOCOCCAL SEPSIS [None]
  - SYNCOPE [None]
  - UNRESPONSIVE TO STIMULI [None]
